FAERS Safety Report 20795722 (Version 4)
Quarter: 2023Q2

REPORT INFORMATION
  Report Type: Spontaneous
  Country: US (occurrence: US)
  Receive Date: 20220506
  Receipt Date: 20230607
  Transmission Date: 20230722
  Serious: Yes (Other)
  Sender: FDA-Public Use
  Company Number: US-PFIZER INC-202200545305

PATIENT
  Age: 75 Year
  Sex: Female
  Weight: 44 kg

DRUGS (2)
  1. PREMPRO [Suspect]
     Active Substance: ESTROGENS, CONJUGATED\MEDROXYPROGESTERONE ACETATE
     Indication: Hot flush
     Dosage: 1 DF, DAILY (0.625MG ESTROGENS CONJUGATED/2.5MG MEDROXYPROGESTERONE ACETATE)
     Route: 048
  2. HYDROCHLOROTHIAZIDE [Concomitant]
     Active Substance: HYDROCHLOROTHIAZIDE
     Indication: Blood pressure abnormal
     Dosage: FOR A LONG TIME

REACTIONS (8)
  - Drug dependence [Unknown]
  - Pneumonia viral [Unknown]
  - Malaise [Not Recovered/Not Resolved]
  - Cerebral disorder [Unknown]
  - COVID-19 [Unknown]
  - Hyperhidrosis [Unknown]
  - Insomnia [Unknown]
  - Allergy to animal [Unknown]

NARRATIVE: CASE EVENT DATE: 20220301
